FAERS Safety Report 8540789-3 (Version None)
Quarter: 2012Q3

REPORT INFORMATION
  Report Type: 
  Country: None (occurrence: None)
  Receive Date: 20120726
  Receipt Date: 20120719
  Transmission Date: 20120928
  Serious: No
  Sender: FDA-Public Use
  Company Number: US-B.I. PHARMACEUTICALS,INC./RIDGEFIELD-2012-BP-16076BP

PATIENT
  Sex: Female

DRUGS (2)
  1. CELEBREX [Concomitant]
  2. MELOXICAM [Suspect]

REACTIONS (1)
  - DRUG INEFFECTIVE [None]
